FAERS Safety Report 10654050 (Version 1)
Quarter: 2014Q4

REPORT INFORMATION
  Report Type: Spontaneous
  Country: US (occurrence: US)
  Receive Date: 20141216
  Receipt Date: 20141216
  Transmission Date: 20150529
  Serious: No
  Sender: FDA-Public Use
  Company Number: US-ELI_LILLY_AND_COMPANY-US201411009562

PATIENT
  Age: 41 Year
  Sex: Female

DRUGS (14)
  1. PREDNISONE. [Concomitant]
     Active Substance: PREDNISONE
  2. CLONAZEPAM. [Concomitant]
     Active Substance: CLONAZEPAM
  3. LETAIRIS [Suspect]
     Active Substance: AMBRISENTAN
     Indication: PULMONARY HYPERTENSION
     Dosage: 10 MG, QD
     Route: 065
     Dates: start: 20140731
  4. MIRENA [Concomitant]
     Active Substance: LEVONORGESTREL
  5. ZANTAC [Concomitant]
     Active Substance: RANITIDINE HYDROCHLORIDE
  6. CLARITIN [Concomitant]
     Active Substance: LORATADINE
  7. CYCLOBENZAPRINE [Concomitant]
     Active Substance: CYCLOBENZAPRINE
  8. LASIX [Concomitant]
     Active Substance: FUROSEMIDE
  9. COUMADIN [Concomitant]
     Active Substance: WARFARIN SODIUM
  10. ADCIRCA [Suspect]
     Active Substance: TADALAFIL
     Indication: PRODUCT USED FOR UNKNOWN INDICATION
     Route: 065
  11. MORPHINE SULFATE. [Concomitant]
     Active Substance: MORPHINE SULFATE
  12. SPIRONOLACTONE. [Concomitant]
     Active Substance: SPIRONOLACTONE
  13. ALBUTEROL SULFATE. [Concomitant]
     Active Substance: ALBUTEROL SULFATE
  14. DIGOXIN. [Concomitant]
     Active Substance: DIGOXIN

REACTIONS (3)
  - Ocular hyperaemia [Unknown]
  - Headache [Unknown]
  - Gastrooesophageal reflux disease [Unknown]
